FAERS Safety Report 4550442-9 (Version None)
Quarter: 2005Q1

REPORT INFORMATION
  Report Type: 
  Country: None (occurrence: None)
  Receive Date: 20050112
  Receipt Date: 20050104
  Transmission Date: 20050727
  Serious: Yes (Other)
  Sender: FDA-Public Use
  Company Number: GB-GLAXOSMITHKLINE-B0363366A

PATIENT
  Age: 57 Year
  Sex: Female

DRUGS (4)
  1. PAROXETINE HCL [Suspect]
     Indication: DEPRESSION
     Dosage: 20MG PER DAY
     Route: 048
     Dates: start: 20010801
  2. AMOXICILLIN [Concomitant]
     Dosage: 250MG PER DAY
     Route: 048
     Dates: start: 20041101, end: 20041101
  3. PYRIDOXINE HCL [Concomitant]
     Dosage: 50MG PER DAY
     Route: 048
     Dates: start: 20041008
  4. CETIRIZINE [Concomitant]
     Dosage: 10MG PER DAY
     Route: 048

REACTIONS (3)
  - DIZZINESS [None]
  - EYE DISORDER [None]
  - VISUAL ACUITY REDUCED [None]
